FAERS Safety Report 6295752-2 (Version None)
Quarter: 2009Q3

REPORT INFORMATION
  Report Type: 
  Country: None (occurrence: None)
  Receive Date: 20090804
  Receipt Date: 20090722
  Transmission Date: 20100115
  Serious: Yes (Other)
  Sender: FDA-Public Use
  Company Number: GB-PFIZER INC-2009238323

PATIENT
  Age: 35 Year

DRUGS (3)
  1. LYRICA [Suspect]
     Indication: ANXIETY
     Dosage: 75 MG, 2X/DAY
     Route: 048
     Dates: start: 20090501, end: 20090101
  2. MIRTAZAPINE [Concomitant]
     Indication: DEPRESSION
     Dosage: 45 MG, UNK
     Route: 048
     Dates: start: 20080301
  3. DIAZEPAM [Concomitant]
     Indication: ANXIETY
     Dosage: 5 MG, AS NEEDED
     Route: 048
     Dates: start: 20080301

REACTIONS (5)
  - AGGRESSION [None]
  - ANGER [None]
  - ANXIETY [None]
  - IRRITABILITY [None]
  - VIOLENCE-RELATED SYMPTOM [None]
